FAERS Safety Report 5069056-X (Version None)
Quarter: 2006Q3

REPORT INFORMATION
  Report Type: 
  Country: None (occurrence: None)
  Receive Date: 20060802
  Receipt Date: 20060801
  Transmission Date: 20061208
  Serious: Yes (Hospitalization)
  Sender: FDA-Public Use
  Company Number: US-MERCK-0608USA00168

PATIENT
  Sex: Female

DRUGS (1)
  1. FOSAMAX [Suspect]
     Route: 048

REACTIONS (1)
  - ULCER HAEMORRHAGE [None]
